FAERS Safety Report 5408623-8 (Version None)
Quarter: 2007Q3

REPORT INFORMATION
  Report Type: 
  Country: None (occurrence: None)
  Receive Date: 20070808
  Receipt Date: 20070803
  Transmission Date: 20080115
  Serious: Yes (Other)
  Sender: FDA-Public Use
  Company Number: PHEH2006US02572

PATIENT
  Age: 21 Year
  Sex: Female
  Weight: 53.514 kg

DRUGS (4)
  1. LAMISIL [Suspect]
     Indication: ONYCHOMYCOSIS
     Dosage: 250 MG, QD
     Route: 048
     Dates: start: 20040701, end: 20041001
  2. NEXIUM [Concomitant]
  3. ASTELIN [Concomitant]
     Route: 045
  4. IBUPROFEN [Concomitant]
     Indication: MIGRAINE

REACTIONS (21)
  - ABDOMINAL PAIN [None]
  - ANXIETY [None]
  - CARDITIS [None]
  - CHEST PAIN [None]
  - COSTOCHONDRITIS [None]
  - DYSPEPSIA [None]
  - DYSPHAGIA [None]
  - DYSPHONIA [None]
  - DYSPNOEA [None]
  - GASTROINTESTINAL MUCOSAL DISORDER [None]
  - GASTROOESOPHAGEAL REFLUX DISEASE [None]
  - LACTOSE INTOLERANCE [None]
  - NERVOUS SYSTEM DISORDER [None]
  - OVARIAN CYST [None]
  - PHARYNGEAL OEDEMA [None]
  - REFLUX OESOPHAGITIS [None]
  - RENAL CYST [None]
  - RHINITIS ALLERGIC [None]
  - RHINORRHOEA [None]
  - THROAT IRRITATION [None]
  - WEIGHT DECREASED [None]
